FAERS Safety Report 23813508 (Version 1)
Quarter: 2024Q2

REPORT INFORMATION
  Report Type: Spontaneous
  Country: PT (occurrence: PT)
  Receive Date: 20240503
  Receipt Date: 20240503
  Transmission Date: 20240716
  Serious: Yes (Other)
  Sender: FDA-Public Use
  Company Number: PT-INFARMED-T202404-304

PATIENT
  Age: 67 Year
  Sex: Female

DRUGS (11)
  1. LACOSAMIDE [Suspect]
     Active Substance: LACOSAMIDE
     Indication: Partial seizures
     Dosage: 150 MILLIGRAM
     Route: 048
     Dates: start: 20240122, end: 20240223
  2. LACOSAMIDE [Suspect]
     Active Substance: LACOSAMIDE
     Dosage: 100 MILLIGRAM
     Route: 048
     Dates: end: 20240121
  3. LACOSAMIDE [Suspect]
     Active Substance: LACOSAMIDE
     Dosage: 50 MILLIGRAM
     Route: 048
     Dates: start: 20231224
  4. ESOMEPRAZOLE [Concomitant]
     Active Substance: ESOMEPRAZOLE
     Indication: Product used for unknown indication
     Dosage: UNK
     Route: 065
  5. SERTRALINE [Concomitant]
     Active Substance: SERTRALINE HYDROCHLORIDE
     Indication: Product used for unknown indication
     Dosage: UNK
     Route: 065
  6. BROMETO DE IPRATROPIO [Concomitant]
     Indication: Product used for unknown indication
     Dosage: UNK
     Route: 065
  7. BISOPROLOL [Concomitant]
     Active Substance: BISOPROLOL\BISOPROLOL FUMARATE
     Indication: Product used for unknown indication
     Dosage: UNK
     Route: 065
  8. BUDESONIDE [Concomitant]
     Active Substance: BUDESONIDE
     Indication: Product used for unknown indication
     Dosage: UNK
     Route: 065
  9. INSULIN GLARGINE [Concomitant]
     Active Substance: INSULIN GLARGINE
     Indication: Product used for unknown indication
     Dosage: UNK
     Route: 065
  10. LEVETIRACETAM [Concomitant]
     Active Substance: LEVETIRACETAM
     Indication: Product used for unknown indication
     Dosage: UNK
     Route: 065
  11. ENOXAPARINA DE SODIO [Concomitant]
     Indication: Product used for unknown indication
     Dosage: UNK
     Route: 065

REACTIONS (6)
  - Bilirubin conjugated increased [Recovered/Resolved]
  - Blood alkaline phosphatase increased [Recovered/Resolved]
  - Alanine aminotransferase increased [Recovered/Resolved]
  - Blood bilirubin increased [Recovered/Resolved]
  - Aspartate aminotransferase increased [Recovered/Resolved]
  - Gamma-glutamyltransferase increased [Recovered/Resolved]
